FAERS Safety Report 12567080 (Version 1)
Quarter: 2016Q3

REPORT INFORMATION
  Report Type: Spontaneous
  Country: US (occurrence: US)
  Receive Date: 20160718
  Receipt Date: 20160718
  Transmission Date: 20161109
  Serious: No
  Sender: FDA-Public Use
  Company Number: US-PFIZER INC-2016316062

PATIENT
  Age: 67 Year
  Sex: Female

DRUGS (3)
  1. INFLUENZA VACCINE [Suspect]
     Active Substance: INFLUENZA VIRUS VACCINE
  2. IBUPROFEN. [Suspect]
     Active Substance: IBUPROFEN
  3. ETODOLAC. [Suspect]
     Active Substance: ETODOLAC

REACTIONS (1)
  - Drug hypersensitivity [Unknown]
